FAERS Safety Report 6687475-2 (Version None)
Quarter: 2010Q2

REPORT INFORMATION
  Report Type: 
  Country: None (occurrence: None)
  Receive Date: 20100416
  Receipt Date: 20100416
  Transmission Date: 20101027
  Serious: No
  Sender: FDA-Public Use
  Company Number: None

PATIENT
  Age: 63 Year
  Sex: Male

DRUGS (1)
  1. LEXISCAN [Suspect]
     Indication: HYPOTENSION
     Dates: start: 20100413, end: 20100413

REACTIONS (1)
  - HYPOTENSION [None]
